FAERS Safety Report 15608429 (Version 1)
Quarter: 2018Q4

REPORT INFORMATION
  Report Type: Spontaneous
  Country: DE (occurrence: DE)
  Receive Date: 20181112
  Receipt Date: 20181112
  Transmission Date: 20190205
  Serious: Yes (Life-Threatening, Other)
  Sender: FDA-Public Use
  Company Number: PHHY2018DE153046

PATIENT
  Age: 80 Year
  Sex: Male
  Weight: 108 kg

DRUGS (1)
  1. RAMIPRIL/HCT [Suspect]
     Active Substance: HYDROCHLOROTHIAZIDE\RAMIPRIL
     Indication: HYPERTENSION
     Dosage: 1 DF, QD, (ZULETZT 1-0-0, BEGINN DER GABE UNBEKANNT)
     Route: 048
     Dates: end: 20130425

REACTIONS (1)
  - Squamous cell carcinoma of skin [Unknown]

NARRATIVE: CASE EVENT DATE: 20180401
